FAERS Safety Report 8408182-1 (Version None)
Quarter: 2012Q2

REPORT INFORMATION
  Report Type: 
  Country: None (occurrence: None)
  Receive Date: 20120604
  Receipt Date: 20120528
  Transmission Date: 20120825
  Serious: Yes (Death, Other)
  Sender: FDA-Public Use
  Company Number: US-TEVA-340398USA

PATIENT
  Age: 60 Year
  Sex: Male

DRUGS (2)
  1. IBUPROFEN [Suspect]
  2. GLYCINE MAX SEED OIL [Suspect]
     Indication: CIRCULATORY COLLAPSE
     Dosage: 20% (20 G/DL) CONCENTRATION OF LIPID EMULSION; BOLUS + INFUSION
     Route: 042

REACTIONS (3)
  - SHOCK [None]
  - CIRCULATORY COLLAPSE [None]
  - DELIRIUM [None]
